FAERS Safety Report 4862240-7 (Version None)
Quarter: 2005Q4

REPORT INFORMATION
  Report Type: 
  Country: None (occurrence: None)
  Receive Date: 20051130
  Receipt Date: 20050211
  Transmission Date: 20060501
  Serious: Yes (Hospitalization, Other)
  Sender: FDA-Public Use
  Company Number: HQWYE333014FEB05

PATIENT
  Age: 45 Year
  Sex: Male

DRUGS (2)
  1. PIPRACIL [Suspect]
     Indication: INTESTINAL PERFORATION
     Dosage: INTRAVENOUS
     Route: 042
  2. PIPRACIL [Suspect]
     Indication: POSTOPERATIVE INFECTION
     Dosage: INTRAVENOUS
     Route: 042

REACTIONS (1)
  - HEPATITIS CHOLESTATIC [None]
